FAERS Safety Report 4509238-6 (Version None)
Quarter: 2004Q4

REPORT INFORMATION
  Report Type: 
  Country: None (occurrence: None)
  Receive Date: 20041025
  Receipt Date: 20040702
  Transmission Date: 20050328
  Serious: Yes (Hospitalization)
  Sender: FDA-Public Use
  Company Number: US-JNJFOC-20040701220

PATIENT
  Age: 76 Year
  Sex: Female
  Weight: 62.1428 kg

DRUGS (2)
  1. INFLIXIMAB (INFLIXIMNAB, RECOMBINANT) LYOPHILIZED POWDER [Suspect]
     Indication: CROHN'S DISEASE
     Dosage: INTRAVENOUS
     Route: 042
  2. AZATHIOPRINE [Concomitant]

REACTIONS (1)
  - RECTAL CANCER [None]
